FAERS Safety Report 5458614-6 (Version None)
Quarter: 2007Q3

REPORT INFORMATION
  Report Type: 
  Country: None (occurrence: None)
  Receive Date: 20070919
  Receipt Date: 20070406
  Transmission Date: 20080115
  Serious: No
  Sender: FDA-Public Use
  Company Number: US-ASTRAZENECA-2007UW06924

PATIENT
  Age: 33 Year
  Sex: Male
  Weight: 136.1 kg

DRUGS (8)
  1. SEROQUEL [Suspect]
     Indication: SLEEP DISORDER
     Route: 048
  2. SEROQUEL [Suspect]
     Indication: FEELING JITTERY
     Route: 048
  3. SEROQUEL [Suspect]
     Route: 048
  4. SEROQUEL [Suspect]
     Route: 048
  5. LEXAPRO [Concomitant]
  6. ALLOPURINOL [Concomitant]
  7. ENDOCULTRAZINE [Concomitant]
  8. XANAX [Concomitant]

REACTIONS (5)
  - DRY MOUTH [None]
  - FEELING ABNORMAL [None]
  - INCREASED APPETITE [None]
  - ORTHOSTATIC HYPOTENSION [None]
  - SOMNOLENCE [None]
